FAERS Safety Report 11840235 (Version 1)
Quarter: 2015Q4

REPORT INFORMATION
  Report Type: Spontaneous
  Country: US (occurrence: US)
  Receive Date: 20151216
  Receipt Date: 20151216
  Transmission Date: 20160305
  Serious: Yes (Other)
  Sender: FDA-Public Use
  Company Number: US-PFIZER INC-2015431181

PATIENT
  Sex: Female

DRUGS (7)
  1. NEURONTIN [Suspect]
     Active Substance: GABAPENTIN
     Indication: JOINT RANGE OF MOTION DECREASED
  2. NEURONTIN [Suspect]
     Active Substance: GABAPENTIN
     Indication: HAND-EYE COORDINATION IMPAIRED
  3. NEURONTIN [Suspect]
     Active Substance: GABAPENTIN
     Indication: MENTAL IMPAIRMENT
  4. NEURONTIN [Suspect]
     Active Substance: GABAPENTIN
     Indication: JUDGEMENT IMPAIRED
  5. NEURONTIN [Suspect]
     Active Substance: GABAPENTIN
     Indication: JOINT INSTABILITY
     Dosage: 300 MG, UNK
  6. NEURONTIN [Suspect]
     Active Substance: GABAPENTIN
     Indication: DISTURBANCE IN ATTENTION
  7. NEURONTIN [Suspect]
     Active Substance: GABAPENTIN
     Indication: HEADACHE

REACTIONS (9)
  - Oropharyngeal discomfort [Unknown]
  - Feeling abnormal [Unknown]
  - Dysuria [Unknown]
  - Bladder discomfort [Unknown]
  - Headache [Unknown]
  - Mydriasis [Unknown]
  - Product use issue [Unknown]
  - Seizure [Unknown]
  - Tremor [Unknown]

NARRATIVE: CASE EVENT DATE: 20151205
